FAERS Safety Report 16086054 (Version 1)
Quarter: 2019Q1

REPORT INFORMATION
  Report Type: Spontaneous
  Country: NO (occurrence: NO)
  Receive Date: 20190318
  Receipt Date: 20190318
  Transmission Date: 20190418
  Serious: Yes (Hospitalization, Other)
  Sender: FDA-Public Use
  Company Number: NO-PFIZER INC-2019112927

PATIENT
  Age: 76 Year
  Sex: Female

DRUGS (2)
  1. DALACIN [Suspect]
     Active Substance: CLINDAMYCIN
     Dosage: UNK
     Dates: start: 201812
  2. ERY-MAX [ERYTHROMYCIN ETHYLSUCCINATE] [Concomitant]
     Dosage: UNK
     Dates: start: 20190204

REACTIONS (4)
  - Clostridium difficile colitis [Recovering/Resolving]
  - Pallor [Unknown]
  - Fatigue [Unknown]
  - Enterocolitis [Recovering/Resolving]

NARRATIVE: CASE EVENT DATE: 201901
